APPROVED DRUG PRODUCT: AIRSUPRA
Active Ingredient: ALBUTEROL SULFATE; BUDESONIDE
Strength: EQ 0.09MG BASE/INH;0.08MG/INH
Dosage Form/Route: AEROSOL, METERED;INHALATION
Application: N214070 | Product #001
Applicant: ASTRAZENECA PHARMACEUTICALS LP
Approved: Jan 10, 2023 | RLD: Yes | RS: Yes | Type: RX

PATENTS:
Patent 9415009 | Expires: May 28, 2030

EXCLUSIVITY:
Code: M-317 | Date: Sep 15, 2028
Code: NP | Date: Jan 10, 2026